FAERS Safety Report 6464365-1 (Version None)
Quarter: 2009Q4

REPORT INFORMATION
  Report Type: 
  Country: None (occurrence: None)
  Receive Date: 20091130
  Receipt Date: 20091130
  Transmission Date: 20100525
  Serious: No
  Sender: FDA-Public Use
  Company Number: None

PATIENT
  Age: 41 Year
  Sex: Male
  Weight: 95.25 kg

DRUGS (1)
  1. MOXIFLOXACIN HCL [Suspect]
     Indication: SINUSITIS
     Dosage: 400 MG AM PO
     Route: 048
     Dates: start: 20091125, end: 20091126

REACTIONS (2)
  - PRURITUS [None]
  - URTICARIA [None]
